FAERS Safety Report 8293275-2 (Version None)
Quarter: 2012Q2

REPORT INFORMATION
  Report Type: 
  Country: None (occurrence: None)
  Receive Date: 20120417
  Receipt Date: 20110526
  Transmission Date: 20120825
  Serious: No
  Sender: FDA-Public Use
  Company Number: US-ASTRAZENECA-2011SE32335

PATIENT
  Sex: Female

DRUGS (5)
  1. ZESTRIL [Concomitant]
  2. NORVASC [Concomitant]
  3. VITAMIN WITH IRON [Concomitant]
  4. HYDROCHLOROTHIAZIDE [Concomitant]
  5. NEXIUM [Suspect]
     Route: 048
     Dates: start: 20110519

REACTIONS (2)
  - SENSATION OF FOREIGN BODY [None]
  - PRURITUS [None]
